FAERS Safety Report 7208805-9 (Version None)
Quarter: 2010Q4

REPORT INFORMATION
  Report Type: 
  Country: None (occurrence: None)
  Receive Date: 20101222
  Receipt Date: 20101208
  Transmission Date: 20110411
  Serious: Yes (Other)
  Sender: FDA-Public Use
  Company Number: 1000017778

PATIENT
  Age: 24 Year
  Sex: Female

DRUGS (4)
  1. ESCITALOPRAM [Suspect]
     Indication: PANIC ATTACK
     Dosage: 5 MG (5 MG, 1 IN 1 D), ORAL 10 MG (10 MG, 1 IN 1 D)
     Route: 048
     Dates: start: 20100421, end: 20100425
  2. ESCITALOPRAM [Suspect]
     Indication: PHOBIA
     Dosage: 5 MG (5 MG, 1 IN 1 D), ORAL 10 MG (10 MG, 1 IN 1 D)
     Route: 048
     Dates: start: 20100421, end: 20100425
  3. ESCITALOPRAM [Suspect]
     Indication: PANIC ATTACK
     Dosage: 5 MG (5 MG, 1 IN 1 D), ORAL 10 MG (10 MG, 1 IN 1 D)
     Route: 048
     Dates: start: 20100426
  4. ESCITALOPRAM [Suspect]
     Indication: PHOBIA
     Dosage: 5 MG (5 MG, 1 IN 1 D), ORAL 10 MG (10 MG, 1 IN 1 D)
     Route: 048
     Dates: start: 20100426

REACTIONS (15)
  - ALOPECIA [None]
  - ANXIETY [None]
  - BEDRIDDEN [None]
  - COLD SWEAT [None]
  - DIARRHOEA [None]
  - DISTURBANCE IN ATTENTION [None]
  - DIZZINESS [None]
  - HEART RATE INCREASED [None]
  - INCREASED APPETITE [None]
  - PARAESTHESIA [None]
  - PRESYNCOPE [None]
  - SLEEP DISORDER [None]
  - SUICIDAL IDEATION [None]
  - WEIGHT DECREASED [None]
  - YAWNING [None]
